FAERS Safety Report 25755334 (Version 1)
Quarter: 2025Q3

REPORT INFORMATION
  Report Type: Spontaneous
  Country: US (occurrence: US)
  Receive Date: 20250903
  Receipt Date: 20250903
  Transmission Date: 20251021
  Serious: No
  Sender: NOBELPHARMA
  Company Number: US-NPA-2025-AER-01486

PATIENT
  Sex: Female

DRUGS (3)
  1. HYFTOR [Suspect]
     Active Substance: SIROLIMUS
     Dates: start: 20230516
  2. MELATONIN [Concomitant]
     Active Substance: MELATONIN
  3. VITAMINS [Concomitant]
     Active Substance: VITAMINS

REACTIONS (3)
  - Skin burning sensation [Unknown]
  - Product dose omission issue [Unknown]
  - Off label use [Unknown]
